FAERS Safety Report 19153445 (Version 1)
Quarter: 2021Q2

REPORT INFORMATION
  Report Type: Spontaneous
  Country: US (occurrence: US)
  Receive Date: 20210419
  Receipt Date: 20210419
  Transmission Date: 20210717
  Serious: Yes (Other)
  Sender: FDA-Public Use
  Company Number: None

PATIENT
  Age: 70 Year
  Sex: Female
  Weight: 99 kg

DRUGS (16)
  1. TRAMADOL. [Concomitant]
     Active Substance: TRAMADOL
  2. TEMAZEPAM. [Concomitant]
     Active Substance: TEMAZEPAM
  3. TOPROL XL [Concomitant]
     Active Substance: METOPROLOL SUCCINATE
  4. ALBUTEROL HFA [Concomitant]
     Active Substance: ALBUTEROL SULFATE
  5. HYOSCYAMINE. [Concomitant]
     Active Substance: HYOSCYAMINE
  6. METFORMIN [Concomitant]
     Active Substance: METFORMIN HYDROCHLORIDE
  7. SYNTHROID [Concomitant]
     Active Substance: LEVOTHYROXINE SODIUM
  8. PROCHLORPERAZINE. [Concomitant]
     Active Substance: PROCHLORPERAZINE
  9. IBRANCE [Suspect]
     Active Substance: PALBOCICLIB
     Indication: BREAST CANCER
     Route: 048
     Dates: start: 20210109
  10. ANASTROZOLE. [Concomitant]
     Active Substance: ANASTROZOLE
  11. ONDANSETRON [Concomitant]
     Active Substance: ONDANSETRON
  12. OPDIVO [Concomitant]
     Active Substance: NIVOLUMAB
  13. GABPENTIN [Concomitant]
  14. B12 FAST DISSOLVE [Concomitant]
  15. QVAR REDIHALER [Concomitant]
     Active Substance: BECLOMETHASONE DIPROPIONATE
  16. OXYCODONE AND ACETAMINOPHEN [Concomitant]
     Active Substance: ACETAMINOPHEN\OXYCODONE HYDROCHLORIDE

REACTIONS (4)
  - Flank pain [None]
  - Nausea [None]
  - Vomiting [None]
  - Abdominal pain upper [None]

NARRATIVE: CASE EVENT DATE: 20210419
